FAERS Safety Report 22057718 (Version 1)
Quarter: 2023Q1

REPORT INFORMATION
  Report Type: Spontaneous
  Country: ES (occurrence: ES)
  Receive Date: 20230303
  Receipt Date: 20230303
  Transmission Date: 20230418
  Serious: Yes (Life-Threatening)
  Sender: FDA-Public Use
  Company Number: None

PATIENT
  Age: 30 Year
  Sex: Female

DRUGS (1)
  1. CIPROFLOXACIN [Suspect]
     Active Substance: CIPROFLOXACIN
     Indication: Oropharyngeal pain
     Dosage: 500 MG 1 TIME, CIPROFLOXACIN TEVAGEN 500 MG FILM-COATED TABLETS EFG, 14 TABLETS
     Route: 065
     Dates: start: 20230206, end: 20230206

REACTIONS (3)
  - Anaphylactic reaction [Recovered/Resolved]
  - Hypoxia [Recovered/Resolved]
  - Angioedema [Recovered/Resolved]

NARRATIVE: CASE EVENT DATE: 20230206
